FAERS Safety Report 7158460-1 (Version None)
Quarter: 2010Q4

REPORT INFORMATION
  Report Type: 
  Country: None (occurrence: None)
  Receive Date: 20101214
  Receipt Date: 20100527
  Transmission Date: 20110411
  Serious: No
  Sender: FDA-Public Use
  Company Number: US-ASTRAZENECA-2010SE24718

PATIENT
  Age: 52 Year
  Sex: Male
  Weight: 91.6 kg

DRUGS (4)
  1. CRESTOR [Suspect]
     Indication: CARDIOVASCULAR DISORDER
     Route: 048
     Dates: start: 20100101
  2. ZETIA [Suspect]
     Indication: CARDIOVASCULAR DISORDER
     Route: 048
  3. ZETIA [Suspect]
     Route: 048
  4. BYSTOLIC [Concomitant]

REACTIONS (2)
  - DRY SKIN [None]
  - PRURITUS [None]
